FAERS Safety Report 8314705-3 (Version None)
Quarter: 2012Q2

REPORT INFORMATION
  Report Type: 
  Country: None (occurrence: None)
  Receive Date: 20120426
  Receipt Date: 20120423
  Transmission Date: 20120825
  Serious: Yes (Life-Threatening, Hospitalization, Other)
  Sender: FDA-Public Use
  Company Number: US-ELI_LILLY_AND_COMPANY-US201202007271

PATIENT
  Sex: Female

DRUGS (6)
  1. CYMBALTA [Suspect]
     Indication: DEPRESSION
     Dosage: 30 MG, UNK
     Dates: start: 20070101
  2. CYMBALTA [Suspect]
     Dosage: 60 MG, QD
  3. CYMBALTA [Suspect]
     Dosage: 90 MG, QD
  4. CYMBALTA [Suspect]
     Dosage: 30 MG, QD
     Dates: start: 20100801
  5. CYMBALTA [Suspect]
     Dosage: 60 MG, BID
     Dates: end: 20090914
  6. CYMBALTA [Suspect]
     Dosage: 60 MG, BID

REACTIONS (29)
  - COMA [None]
  - ROAD TRAFFIC ACCIDENT [None]
  - ROTATOR CUFF REPAIR [None]
  - HEAD INJURY [None]
  - LOWER LIMB FRACTURE [None]
  - TENODESIS [None]
  - CLAVICLE FRACTURE [None]
  - APHASIA [None]
  - FAECAL INCONTINENCE [None]
  - PNEUMOTHORAX TRAUMATIC [None]
  - VOCAL CORD PARALYSIS [None]
  - MEMORY IMPAIRMENT [None]
  - SPINAL CORD INJURY [None]
  - CERVICAL VERTEBRAL FRACTURE [None]
  - JOINT INJURY [None]
  - UPPER LIMB FRACTURE [None]
  - SPLENECTOMY [None]
  - BLADDER PROLAPSE [None]
  - INTESTINAL PROLAPSE [None]
  - CARPAL TUNNEL SYNDROME [None]
  - URINARY INCONTINENCE [None]
  - HUMERUS FRACTURE [None]
  - RIB FRACTURE [None]
  - SPLENIC RUPTURE [None]
  - TRAUMATIC HAEMATOMA [None]
  - SPINAL FRACTURE [None]
  - LACERATION [None]
  - JOINT DISLOCATION [None]
  - SPINAL COMPRESSION FRACTURE [None]
